FAERS Safety Report 9415302 (Version 3)
Quarter: 2013Q3

REPORT INFORMATION
  Report Type: Report from Study
  Country: EG (occurrence: EG)
  Receive Date: 20130723
  Receipt Date: 20130809
  Transmission Date: 20140515
  Serious: Yes (Hospitalization, Other)
  Sender: FDA-Public Use
  Company Number: EG-B.I. PHARMACEUTICALS,INC./RIDGEFIELD-2013-CS-00484AE

PATIENT
  Age: 63 Year
  Sex: Female
  Weight: 110 kg

DRUGS (3)
  1. MICARDIS [Suspect]
     Indication: HYPERTENSION
     Dosage: 80 MG
     Route: 048
     Dates: start: 20111226
  2. ASPIRIN OR OTHER ANTIPLATELET AGENT [Concomitant]
     Indication: ANTIPLATELET THERAPY
     Route: 048
     Dates: start: 2011
  3. INSULIN [Concomitant]
     Indication: DIABETES MELLITUS
     Route: 058
     Dates: start: 20111226

REACTIONS (4)
  - Cerebrovascular accident [Unknown]
  - Nervous system disorder [Unknown]
  - Cerebrovascular accident [Not Recovered/Not Resolved]
  - Fatigue [Unknown]
